FAERS Safety Report 6433269-2 (Version None)
Quarter: 2009Q4

REPORT INFORMATION
  Report Type: 
  Country: None (occurrence: None)
  Receive Date: 20091109
  Receipt Date: 20091028
  Transmission Date: 20100525
  Serious: Yes (Other)
  Sender: FDA-Public Use
  Company Number: CA-JNJCH-2009029013

PATIENT
  Sex: Female

DRUGS (1)
  1. LUBRIDERM UNSCENTED [Suspect]
     Indication: DRUG USE FOR UNKNOWN INDICATION
     Dosage: TEXT:UNSPECIFIED
     Route: 061

REACTIONS (2)
  - ILL-DEFINED DISORDER [None]
  - LOSS OF CONSCIOUSNESS [None]
